FAERS Safety Report 19814017 (Version 1)
Quarter: 2021Q3

REPORT INFORMATION
  Report Type: Spontaneous
  Country: AU (occurrence: AU)
  Receive Date: 20210910
  Receipt Date: 20210910
  Transmission Date: 20211014
  Serious: Yes (Hospitalization, Other)
  Sender: FDA-Public Use
  Company Number: AU-B.I. PHARMACEUTICALS,INC./RIDGEFIELD-2021-BI-125106

PATIENT
  Age: 7 Decade
  Sex: Female

DRUGS (1)
  1. JARDIANCE [Suspect]
     Active Substance: EMPAGLIFLOZIN
     Indication: TYPE 2 DIABETES MELLITUS

REACTIONS (4)
  - Diabetic ketoacidosis [Recovering/Resolving]
  - Dyspnoea [Recovering/Resolving]
  - Toe amputation [Unknown]
  - Product use in unapproved therapeutic environment [Unknown]
